FAERS Safety Report 8332891-6 (Version None)
Quarter: 2012Q1

REPORT INFORMATION
  Report Type: 
  Country: None (occurrence: None)
  Receive Date: 20120327
  Receipt Date: 20100603
  Transmission Date: 20120608
  Serious: Yes (Hospitalization, Other)
  Sender: FDA-Public Use
  Company Number: PHHY2010US11367

PATIENT
  Age: 75 Year
  Sex: Female
  Weight: 108.8 kg

DRUGS (10)
  1. GLEEVEC [Suspect]
     Indication: CHRONIC MYELOID LEUKAEMIA
     Dosage: 400 MG, DAILY, ORAL, 100 MG, DAILY, ORAL
     Route: 048
     Dates: start: 20100201
  2. GLEEVEC [Suspect]
     Indication: CHRONIC MYELOID LEUKAEMIA
     Dosage: 400 MG, DAILY, ORAL, 100 MG, DAILY, ORAL
     Route: 048
     Dates: start: 20100212
  3. PROTONIX [Concomitant]
  4. DIOVAN [Concomitant]
  5. LASIX [Concomitant]
  6. INDERAL LA [Concomitant]
  7. LACTULOSE [Concomitant]
  8. MULTI-VIT (VITAMINS NOS) [Concomitant]
  9. ZYLOPRIM [Concomitant]
  10. SYNTHROID [Concomitant]

REACTIONS (5)
  - FLUID RETENTION [None]
  - OEDEMA [None]
  - WHITE BLOOD CELL COUNT INCREASED [None]
  - MYALGIA [None]
  - DIARRHOEA [None]
